FAERS Safety Report 7545573-5 (Version None)
Quarter: 2011Q2

REPORT INFORMATION
  Report Type: 
  Country: None (occurrence: None)
  Receive Date: 20110614
  Receipt Date: 20110128
  Transmission Date: 20111010
  Serious: Yes (Hospitalization)
  Sender: FDA-Public Use
  Company Number: US-BAYER-201023575NA

PATIENT
  Age: 20 Year
  Sex: Female
  Weight: 92.517 kg

DRUGS (3)
  1. YASMIN [Suspect]
     Indication: ORAL CONTRACEPTION
     Route: 048
     Dates: start: 20090801, end: 20100115
  2. YAZ [Suspect]
     Indication: CONTRACEPTION
     Route: 048
  3. FEXOFENADINE [Concomitant]
     Route: 048
     Dates: start: 20091113

REACTIONS (6)
  - PULMONARY EMBOLISM [None]
  - DEEP VEIN THROMBOSIS [None]
  - CARDIOMEGALY [None]
  - COUGH [None]
  - DYSPNOEA EXERTIONAL [None]
  - PALPITATIONS [None]
